FAERS Safety Report 6920651-X (Version None)
Quarter: 2010Q3

REPORT INFORMATION
  Report Type: 
  Country: None (occurrence: None)
  Receive Date: 20100812
  Receipt Date: 20100802
  Transmission Date: 20110219
  Serious: No
  Sender: FDA-Public Use
  Company Number: US-JNJFOC-20100801077

PATIENT
  Sex: Male
  Weight: 147.42 kg

DRUGS (15)
  1. SANDOZ FENTANYL TRANSDERMAL SYSTEM [Suspect]
     Indication: RHEUMATOID ARTHRITIS
     Route: 062
  2. SANDOZ FENTANYL TRANSDERMAL SYSTEM [Suspect]
     Route: 062
  3. SANDOZ FENTANYL TRANSDERMAL SYSTEM [Suspect]
     Route: 062
  4. SANDOZ FENTANYL TRANSDERMAL SYSTEM [Suspect]
     Route: 062
  5. MULTIPLE VITAMIN [Concomitant]
     Indication: VITAMIN SUPPLEMENTATION
     Route: 048
  6. COUMADIN [Concomitant]
     Indication: HEART RATE IRREGULAR
     Route: 048
  7. OMEPRAZOLE [Concomitant]
     Indication: GASTROOESOPHAGEAL REFLUX DISEASE
     Route: 048
  8. TERAZOSIN HCL [Concomitant]
     Indication: BLADDER DISORDER
     Route: 048
  9. OXYBUTIN [Concomitant]
     Indication: BLADDER DISORDER
     Route: 048
  10. DILTIAZEM HCL [Concomitant]
     Indication: HYPERTENSION
     Route: 048
  11. QUINAPRIL [Concomitant]
     Indication: HYPERTENSION
     Route: 048
  12. ATENOLOL [Concomitant]
     Indication: CARDIAC DISORDER
     Route: 048
  13. TRAMADOL HYDROCHLORIDE [Concomitant]
     Indication: PAIN
     Route: 048
  14. LASIX [Concomitant]
     Indication: FLUID RETENTION
     Route: 048
  15. ACAI BERRY (ACAI W/ WHITE TEA) [Concomitant]
     Indication: ASTHENIA
     Route: 048

REACTIONS (6)
  - APPLICATION SITE IRRITATION [None]
  - APPLICATION SITE PRURITUS [None]
  - DRUG ADMINISTERED AT INAPPROPRIATE SITE [None]
  - PRODUCT ADHESION ISSUE [None]
  - TREATMENT NONCOMPLIANCE [None]
  - WRONG TECHNIQUE IN DRUG USAGE PROCESS [None]
